FAERS Safety Report 4431804-7 (Version None)
Quarter: 2004Q3

REPORT INFORMATION
  Report Type: 
  Country: None (occurrence: None)
  Receive Date: 20040825
  Receipt Date: 20040816
  Transmission Date: 20050211
  Serious: Yes (Other)
  Sender: FDA-Public Use
  Company Number: 200418159GDDC

PATIENT
  Sex: Female

DRUGS (1)
  1. RIFATER [Suspect]
     Dosage: DOSE: UNKNOWN

REACTIONS (1)
  - HYPERTHYROIDISM [None]
